FAERS Safety Report 9186116 (Version 1)
Quarter: 2013Q1

REPORT INFORMATION
  Report Type: Spontaneous
  Country: US (occurrence: None)
  Receive Date: 20130321
  Receipt Date: 20130321
  Transmission Date: 20140127
  Serious: Yes (Hospitalization)
  Sender: FDA-Public Use
  Company Number: 2013-0427

PATIENT
  Age: 66 Year
  Sex: Male
  Weight: 103.6 kg

DRUGS (6)
  1. CARFILZOMIB [Suspect]
     Indication: WALDENSTROM^S MACROGLOBULINAEMIA
     Route: 042
     Dates: start: 20121210, end: 20130219
  2. RITUXIMAB [Concomitant]
  3. DEXAMETHASONE [Concomitant]
  4. ACYCLOVIR [Concomitant]
  5. LASIX [Concomitant]
  6. PEPCID [Concomitant]

REACTIONS (19)
  - Atrial flutter [None]
  - Tachycardia [None]
  - Cardiomyopathy [None]
  - Oedema peripheral [None]
  - Exercise tolerance decreased [None]
  - Dyspnoea [None]
  - Pulmonary congestion [None]
  - Atrial fibrillation [None]
  - Red blood cell count decreased [None]
  - Haemoglobin decreased [None]
  - Haematocrit decreased [None]
  - Left ventricular dysfunction [None]
  - Blood glucose increased [None]
  - Blood bilirubin increased [None]
  - Blood albumin decreased [None]
  - Blood calcium decreased [None]
  - Mean cell volume increased [None]
  - Mean cell haemoglobin increased [None]
  - Red cell distribution width increased [None]
